FAERS Safety Report 8824970 (Version 2)
Quarter: 2012Q4

REPORT INFORMATION
  Report Type: 
  Country: IT (occurrence: IT)
  Receive Date: 20121004
  Receipt Date: 20121101
  Transmission Date: 20130627
  Serious: Yes (Hospitalization)
  Sender: FDA-Public Use
  Company Number: IT-PFIZER INC-2012245033

PATIENT
  Age: 81 Year
  Sex: Female

DRUGS (8)
  1. LYRICA [Suspect]
     Indication: FIBROMYALGIA
     Dosage: 75 mg, 1x/day
     Route: 048
     Dates: start: 201206, end: 20120921
  2. LYRICA [Suspect]
     Dosage: 150 mg, 1x/day
     Route: 048
     Dates: start: 20120922, end: 20120925
  3. CARVEDILOL [Concomitant]
     Dosage: UNK
  4. EUTIROX [Concomitant]
     Dosage: UNK
  5. COMBISARTAN [Concomitant]
     Dosage: UNK
  6. DOBETIN [Concomitant]
     Dosage: UNK
  7. CARDIOASPIRIN [Concomitant]
     Dosage: UNK
  8. CIPRALEX [Concomitant]
     Dosage: UNK

REACTIONS (4)
  - Asthenia [Recovering/Resolving]
  - Bradykinesia [Recovering/Resolving]
  - Bradyphrenia [Recovering/Resolving]
  - Drop attacks [Recovering/Resolving]
